FAERS Safety Report 16846799 (Version 4)
Quarter: 2019Q4

REPORT INFORMATION
  Report Type: Report from Study
  Country: IN (occurrence: IN)
  Receive Date: 20190924
  Receipt Date: 20191107
  Transmission Date: 20200122
  Serious: Yes (Death, Hospitalization, Other)
  Sender: FDA-Public Use
  Company Number: PHHY2019IN215773

PATIENT
  Age: 54 Year
  Sex: Male
  Weight: 65 kg

DRUGS (1)
  1. TASIGNA [Suspect]
     Active Substance: NILOTINIB
     Indication: CHRONIC MYELOID LEUKAEMIA
     Dosage: 400 MG, BID
     Route: 048
     Dates: start: 20190904, end: 20190918

REACTIONS (6)
  - Angina pectoris [Unknown]
  - Dyspnoea [Unknown]
  - Pyrexia [Unknown]
  - Asthenia [Unknown]
  - Therapy non-responder [Unknown]
  - Death [Fatal]

NARRATIVE: CASE EVENT DATE: 20190904
